FAERS Safety Report 20702018 (Version 3)
Quarter: 2022Q2

REPORT INFORMATION
  Report Type: Spontaneous
  Country: US (occurrence: US)
  Receive Date: 20220412
  Receipt Date: 20220606
  Transmission Date: 20220721
  Serious: No
  Sender: FDA-Public Use
  Company Number: US-MYLANLABS-2022M1024410

PATIENT
  Age: 79 Year
  Sex: Male
  Weight: 113.4 kg

DRUGS (6)
  1. MOXIFLOXACIN [Suspect]
     Active Substance: MOXIFLOXACIN
     Indication: Cataract
     Dosage: 1 DROP, QID (1 DROP IN THE EYE 4 TIMES DAILY)
     Route: 047
     Dates: start: 20220327
  2. MOXIFLOXACIN [Suspect]
     Active Substance: MOXIFLOXACIN
     Dosage: 1 DROP, Q2H
     Route: 047
  3. MOXIFLOXACIN [Suspect]
     Active Substance: MOXIFLOXACIN
     Dosage: UNK
     Route: 047
  4. PREDNISOLONE ACETATE [Concomitant]
     Active Substance: PREDNISOLONE ACETATE
     Dosage: UNK (OPHTHALMIC SUSPENSION)
  5. PROLENSA [Concomitant]
     Active Substance: BROMFENAC SODIUM
     Dosage: UNK (OPHTHALMIC SOLUTION)
  6. LATANOPROST [Concomitant]
     Active Substance: LATANOPROST
     Dosage: UNK (OPHTHALMIC SUSPENSION)

REACTIONS (4)
  - Off label use [Unknown]
  - Overdose [Unknown]
  - Product container issue [Unknown]
  - Product packaging quantity issue [Unknown]

NARRATIVE: CASE EVENT DATE: 20220328
